FAERS Safety Report 6418088-5 (Version None)
Quarter: 2009Q4

REPORT INFORMATION
  Report Type: 
  Country: None (occurrence: None)
  Receive Date: 20091028
  Receipt Date: 20091026
  Transmission Date: 20100525
  Serious: Yes (Other)
  Sender: FDA-Public Use
  Company Number: ES-ROXANE LABORATORIES, INC.-2009-RO-01094RO

PATIENT
  Age: 73 Year
  Sex: Female

DRUGS (12)
  1. ROPINIROLE [Suspect]
     Dosage: 0.25 MG
     Dates: start: 20080201
  2. ROPINIROLE [Suspect]
     Dosage: 3 MG
  3. ROPINIROLE [Suspect]
     Dosage: 0.125 MG
  4. LORAZEPAM [Suspect]
     Indication: DEPRESSION
     Dosage: 2 MG
  5. MIRTAZAPINE [Suspect]
     Indication: DEPRESSION
     Dosage: 60 MG
  6. CARBIDOPA/L-DOPA [Suspect]
     Indication: PARKINSON'S DISEASE
  7. CARBIDOPA/L-DOPA [Suspect]
  8. CARBIDOPA/L-DOPA [Suspect]
  9. CABERGOLINE [Suspect]
     Indication: PARKINSON'S DISEASE
  10. PRAMIPEXOLE [Suspect]
     Indication: PARKINSON'S DISEASE
  11. ROTIGOTINE [Concomitant]
     Dosage: 2 MG
     Route: 062
  12. ROTIGOTINE [Concomitant]
     Dosage: 8 MG
     Route: 062

REACTIONS (4)
  - NAUSEA [None]
  - PANIC ATTACK [None]
  - PARKINSON'S DISEASE [None]
  - VOMITING [None]
